FAERS Safety Report 5553641-2 (Version None)
Quarter: 2007Q4

REPORT INFORMATION
  Report Type: 
  Country: None (occurrence: None)
  Receive Date: 20071213
  Receipt Date: 20071204
  Transmission Date: 20080405
  Serious: Yes (Hospitalization)
  Sender: FDA-Public Use
  Company Number: PHHO2007BE09191

PATIENT
  Age: 67 Year
  Sex: Female
  Weight: 75 kg

DRUGS (1)
  1. AMN107 [Suspect]
     Indication: CHRONIC MYELOID LEUKAEMIA
     Dosage: 800 MG, UNK
     Route: 048
     Dates: start: 20070509, end: 20070516

REACTIONS (5)
  - DERMATITIS ALLERGIC [None]
  - INDURATION [None]
  - RASH [None]
  - VASCULITIS [None]
  - WHITE BLOOD CELL COUNT INCREASED [None]
